FAERS Safety Report 9171339 (Version 2)
Quarter: 2013Q1

REPORT INFORMATION
  Report Type: Spontaneous
  Country: BR (occurrence: BR)
  Receive Date: 20130319
  Receipt Date: 20130329
  Transmission Date: 20140127
  Serious: Yes (Other)
  Sender: FDA-Public Use
  Company Number: BR-PFIZER INC-2013087348

PATIENT
  Sex: Female

DRUGS (7)
  1. LYRICA [Suspect]
     Indication: FIBROMYALGIA
     Dosage: TWO CAPSULES OF 75MG, UNK
     Route: 048
  2. LYRICA [Suspect]
     Indication: DEPRESSION
  3. LYRICA [Suspect]
     Indication: HEADACHE
  4. SPIRONOLACTONE [Concomitant]
     Indication: HYPERTRICHOSIS
     Dosage: UNK
  5. SPIRONOLACTONE [Concomitant]
     Indication: FLUID RETENTION
  6. PURAN T4 [Concomitant]
     Indication: AUTOIMMUNE THYROIDITIS
     Dosage: UNK
  7. COLTRAX [Concomitant]
     Indication: MUSCLE RELAXANT THERAPY
     Dosage: UNK

REACTIONS (9)
  - Epicondylitis [Unknown]
  - Tendonitis [Not Recovered/Not Resolved]
  - Activities of daily living impaired [Not Recovered/Not Resolved]
  - Hypertrichosis [Unknown]
  - Drug ineffective for unapproved indication [Not Recovered/Not Resolved]
  - Weight increased [Not Recovered/Not Resolved]
  - Fluid retention [Unknown]
  - Joint swelling [Unknown]
  - Off label use [Not Recovered/Not Resolved]
